FAERS Safety Report 23455180 (Version 2)
Quarter: 2024Q1

REPORT INFORMATION
  Report Type: Report from Study
  Country: US (occurrence: US)
  Receive Date: 20240130
  Receipt Date: 20240207
  Transmission Date: 20240409
  Serious: No
  Sender: FDA-Public Use
  Company Number: US-GILEAD-2024-0659617

PATIENT
  Age: 28 Year
  Sex: Male

DRUGS (1)
  1. BICTEGRAVIR\EMTRICITABINE\TENOFOVIR ALAFENAMIDE [Suspect]
     Active Substance: BICTEGRAVIR\EMTRICITABINE\TENOFOVIR ALAFENAMIDE
     Indication: HIV infection
     Dosage: 275 MG, QD
     Route: 048

REACTIONS (4)
  - Suspected counterfeit product [Unknown]
  - Product dispensing error [Unknown]
  - Product colour issue [Unknown]
  - Product dose omission issue [Not Recovered/Not Resolved]

NARRATIVE: CASE EVENT DATE: 20240118
